FAERS Safety Report 12498912 (Version 1)
Quarter: 2016Q2

REPORT INFORMATION
  Report Type: Spontaneous
  Country: US (occurrence: US)
  Receive Date: 20160627
  Receipt Date: 20160627
  Transmission Date: 20160815
  Serious: No
  Sender: FDA-Public Use
  Company Number: US-TEVA-592627USA

PATIENT
  Age: 70 Year
  Sex: Female
  Weight: 103.06 kg

DRUGS (3)
  1. AMBIEN [Concomitant]
     Active Substance: ZOLPIDEM TARTRATE
     Route: 048
  2. ANASTROZOLE. [Suspect]
     Active Substance: ANASTROZOLE
     Indication: BREAST CANCER STAGE IV
     Dosage: 1 MILLIGRAM DAILY;
     Route: 048
     Dates: start: 20150402
  3. ADVIL [Concomitant]
     Active Substance: IBUPROFEN
     Route: 048

REACTIONS (2)
  - Abdominal pain [Unknown]
  - Arthralgia [Unknown]

NARRATIVE: CASE EVENT DATE: 20150821
